FAERS Safety Report 10643924 (Version 2)
Quarter: 2014Q4

REPORT INFORMATION
  Report Type: Spontaneous
  Country: ES (occurrence: ES)
  Receive Date: 20141210
  Receipt Date: 20141215
  Transmission Date: 20150529
  Serious: Yes (Life-Threatening, Hospitalization)
  Sender: FDA-Public Use
  Company Number: ES-BIAL, PORTELA + CA S.A.-BIAL-02731

PATIENT
  Age: 41 Year
  Sex: Female
  Weight: 65 kg

DRUGS (4)
  1. ESLICARBAZEPINE ACETATE [Suspect]
     Active Substance: ESLICARBAZEPINE ACETATE
     Indication: PARTIAL SEIZURES
     Dosage: 400 MG, DAILY
     Route: 048
  2. LACOSAMIDE [Concomitant]
     Active Substance: LACOSAMIDE
     Indication: EPILEPSY
     Dosage: 600 MG, DAILY
  3. ESLICARBAZEPINE ACETATE [Suspect]
     Active Substance: ESLICARBAZEPINE ACETATE
     Indication: PARTIAL SEIZURES
     Dosage: 800 MG, DAILY
     Route: 048
     Dates: start: 201107, end: 201108
  4. LEVETIRACETAM. [Concomitant]
     Active Substance: LEVETIRACETAM

REACTIONS (9)
  - Lymphadenopathy [Unknown]
  - Liver function test abnormal [Unknown]
  - Erythema multiforme [Recovered/Resolved]
  - Pruritus [Recovered/Resolved]
  - Dysphagia [Unknown]
  - Oropharyngeal pain [Unknown]
  - Pain [Recovered/Resolved]
  - Dyspnoea [Unknown]
  - Enanthema [Recovered/Resolved]

NARRATIVE: CASE EVENT DATE: 20110801
